FAERS Safety Report 5074408-8 (Version None)
Quarter: 2006Q3

REPORT INFORMATION
  Report Type: 
  Country: None (occurrence: None)
  Receive Date: 20060803
  Receipt Date: 20060726
  Transmission Date: 20061208
  Serious: Yes (Life-Threatening)
  Sender: FDA-Public Use
  Company Number: HQWYE910821FEB06

PATIENT
  Age: 78 Year
  Sex: Male

DRUGS (9)
  1. MYLOTARG [Suspect]
     Indication: ACUTE MYELOID LEUKAEMIA
     Dosage: A SINGLE 9 MG/M^2 DOSE INTRAVENOUS DRIP
     Route: 041
     Dates: start: 20051110, end: 20051110
  2. MYLOTARG [Suspect]
     Indication: ACUTE MYELOID LEUKAEMIA
     Dosage: A SINGLE 9 MG/M^2 DOSE INTRAVENOUS DRIP
     Route: 041
     Dates: start: 20051128, end: 20051128
  3. CEFTAZIDIME [Concomitant]
     Indication: DISEASE RECURRENCE
  4. SULPERAZON (CEFOPERAZONE SODIUM/SULBACTAM SODIUM) [Concomitant]
  5. SULPERAZON (CEFOPERAZONE SODIUM/SULBACTAM SODIUM) [Concomitant]
  6. POLYMYXIN B SULFATE [Concomitant]
  7. ULCERMIN (SUCRALFATE) [Concomitant]
  8. ALLOPURINOL [Concomitant]
  9. DIFLUCAN [Concomitant]

REACTIONS (12)
  - ALANINE AMINOTRANSFERASE INCREASED [None]
  - ANAEMIA [None]
  - ANOREXIA [None]
  - ASPARTATE AMINOTRANSFERASE INCREASED [None]
  - BLOOD LACTATE DEHYDROGENASE INCREASED [None]
  - CONDITION AGGRAVATED [None]
  - DISEASE PROGRESSION [None]
  - FEBRILE NEUTROPENIA [None]
  - HYPERTENSION [None]
  - HYPOKALAEMIA [None]
  - PAIN IN EXTREMITY [None]
  - THROMBOCYTOPENIA [None]
